FAERS Safety Report 5156735-9 (Version None)
Quarter: 2006Q4

REPORT INFORMATION
  Report Type: 
  Country: None (occurrence: None)
  Receive Date: 20061122
  Receipt Date: 20061117
  Transmission Date: 20070319
  Serious: Yes (Hospitalization)
  Sender: FDA-Public Use
  Company Number: US-MERCK-0611USA05671

PATIENT
  Age: 69 Year
  Sex: Female

DRUGS (12)
  1. JANUVIA [Suspect]
     Indication: DIABETES MELLITUS NON-INSULIN-DEPENDENT
     Route: 048
     Dates: start: 20061117, end: 20061117
  2. LASIX [Concomitant]
     Route: 065
  3. SENOKOT [Concomitant]
     Route: 065
  4. NICOTINE [Concomitant]
     Route: 065
  5. AVINZA [Concomitant]
     Route: 065
  6. COMBIVENT [Concomitant]
     Route: 065
  7. VERAPAMIL [Concomitant]
     Route: 065
  8. LORTAB [Concomitant]
     Route: 065
  9. PRAVACHOL [Concomitant]
     Route: 065
  10. NOVOLOG [Concomitant]
     Route: 065
  11. VITAMIN D (UNSPECIFIED) [Concomitant]
     Route: 065
  12. CLONIDINE [Concomitant]
     Route: 065

REACTIONS (1)
  - CEREBROVASCULAR ACCIDENT [None]
